FAERS Safety Report 8545974-2 (Version None)
Quarter: 2012Q3

REPORT INFORMATION
  Report Type: 
  Country: None (occurrence: None)
  Receive Date: 20120727
  Receipt Date: 20120417
  Transmission Date: 20120928
  Serious: No
  Sender: FDA-Public Use
  Company Number: US-ASTRAZENECA-2011SE72332

PATIENT
  Age: 51 Year
  Sex: Female
  Weight: 95.3 kg

DRUGS (14)
  1. SEROQUEL [Suspect]
     Route: 048
  2. SEROQUEL [Suspect]
     Route: 048
  3. SEROQUEL [Suspect]
     Route: 048
  4. SEROQUEL [Suspect]
     Route: 048
  5. SEROQUEL [Suspect]
     Route: 048
  6. SEROQUEL [Suspect]
     Indication: DEPRESSION
     Route: 048
  7. SEROQUEL [Suspect]
     Indication: PSYCHOTIC DISORDER
     Route: 048
  8. SEROQUEL [Suspect]
     Route: 048
  9. SEROQUEL [Suspect]
     Route: 048
  10. SEROQUEL [Suspect]
     Route: 048
  11. LOTS OF MEDICATION [Concomitant]
  12. SEROQUEL [Suspect]
     Indication: SUICIDAL IDEATION
     Route: 048
  13. SEROQUEL [Suspect]
     Route: 048
  14. XELEXA [Concomitant]

REACTIONS (3)
  - MALABSORPTION [None]
  - MALAISE [None]
  - ANAEMIA [None]
